FAERS Safety Report 4587692-1 (Version None)
Quarter: 2005Q1

REPORT INFORMATION
  Report Type: 
  Country: None (occurrence: None)
  Receive Date: 20050215
  Receipt Date: 20050202
  Transmission Date: 20050727
  Serious: Yes (Death, Other)
  Sender: FDA-Public Use
  Company Number: 2005005514

PATIENT
  Age: 55 Year
  Sex: Male
  Weight: 102.5129 kg

DRUGS (8)
  1. CELEBREX [Suspect]
     Indication: RHEUMATOID ARTHRITIS
     Dosage: 400 MG (200 MG, 2 IN 1 D), ORAL
     Route: 048
     Dates: start: 20000501
  2. CLONAZEPAM [Concomitant]
  3. ATORVASTATIN (ATORVASTATIN) [Concomitant]
  4. LANSOPRAZOLE [Concomitant]
  5. FOLIC ACID [Concomitant]
  6. VENLAFAXINE HCL [Concomitant]
  7. QUININE SULFATE (QUININE SULFATE) [Concomitant]
  8. LEFLUNOMIDE [Concomitant]

REACTIONS (4)
  - HYPERLIPIDAEMIA [None]
  - LOSS OF CONSCIOUSNESS [None]
  - SUDDEN CARDIAC DEATH [None]
  - VENTRICULAR FIBRILLATION [None]
